FAERS Safety Report 5636683-8 (Version None)
Quarter: 2008Q1

REPORT INFORMATION
  Report Type: 
  Country: None (occurrence: None)
  Receive Date: 20080220
  Receipt Date: 20080206
  Transmission Date: 20080703
  Serious: Yes (Life-Threatening)
  Sender: FDA-Public Use
  Company Number: TPH-00002

PATIENT
  Age: 46 Year
  Sex: Female

DRUGS (1)
  1. TRIPHASIL-21 [Suspect]
     Indication: ORAL CONTRACEPTION
     Dosage: 1 TABLET, QD, PO
     Route: 048
     Dates: start: 20011124

REACTIONS (1)
  - UTERINE CANCER [None]
